FAERS Safety Report 8499295-7 (Version None)
Quarter: 2012Q3

REPORT INFORMATION
  Report Type: 
  Country: None (occurrence: None)
  Receive Date: 20120710
  Receipt Date: 20120705
  Transmission Date: 20120928
  Serious: Yes (Hospitalization)
  Sender: FDA-Public Use
  Company Number: PHHY2012IT058093

PATIENT
  Sex: Male

DRUGS (1)
  1. TEGRETOL [Suspect]
     Indication: PARTIAL SEIZURES
     Dosage: 150 MG, DAILY
     Route: 048
     Dates: start: 20120528, end: 20120601

REACTIONS (3)
  - LOSS OF CONSCIOUSNESS [None]
  - VOMITING [None]
  - CONVULSION [None]
